FAERS Safety Report 22041374 (Version 3)
Quarter: 2025Q3

REPORT INFORMATION
  Report Type: Report from Study
  Country: US (occurrence: US)
  Receive Date: 20230227
  Receipt Date: 20250710
  Transmission Date: 20251020
  Serious: Yes (Other)
  Sender: JAZZ
  Company Number: US-JAZZ PHARMACEUTICALS-2023-US-004279

PATIENT
  Sex: Male
  Weight: 19.2 kg

DRUGS (1)
  1. EPIDIOLEX [Suspect]
     Active Substance: CANNABIDIOL
     Indication: Lennox-Gastaut syndrome
     Dosage: 0.5 MILLILITER, BID
     Route: 048

REACTIONS (4)
  - Rash [Unknown]
  - Lip swelling [Recovering/Resolving]
  - Ear inflammation [Unknown]
  - Pruritus [Unknown]
